FAERS Safety Report 21394252 (Version 1)
Quarter: 2022Q3

REPORT INFORMATION
  Report Type: Spontaneous
  Country: SE (occurrence: SE)
  Receive Date: 20220930
  Receipt Date: 20220930
  Transmission Date: 20221026
  Serious: Yes (Hospitalization)
  Sender: FDA-Public Use
  Company Number: None

PATIENT
  Age: 56 Year
  Sex: Male

DRUGS (2)
  1. METHOTREXATE [Suspect]
     Active Substance: METHOTREXATE
     Indication: Psoriatic arthropathy
     Route: 065
     Dates: start: 20211206, end: 20220424
  2. PREDNISOLONE [Suspect]
     Active Substance: PREDNISOLONE
     Indication: Psoriatic arthropathy
     Dosage: 20 MG
     Route: 065
     Dates: start: 20211206

REACTIONS (1)
  - Pneumocystis jirovecii pneumonia [Recovered/Resolved]

NARRATIVE: CASE EVENT DATE: 20220424
